FAERS Safety Report 6389651-5 (Version None)
Quarter: 2009Q4

REPORT INFORMATION
  Report Type: 
  Country: None (occurrence: None)
  Receive Date: 20091006
  Receipt Date: 20090928
  Transmission Date: 20100525
  Serious: Yes (Other)
  Sender: FDA-Public Use
  Company Number: JP-BRISTOL-MYERS SQUIBB COMPANY-14794960

PATIENT
  Age: 49 Year
  Sex: Male

DRUGS (10)
  1. CYCLOPHOSPHAMIDE [Suspect]
     Indication: B-CELL LYMPHOMA
     Dates: start: 20060601
  2. ENTECAVIR [Suspect]
     Indication: HEPATITIS B
  3. VINCRISTINE [Suspect]
     Indication: B-CELL LYMPHOMA
     Dates: start: 20060601
  4. DOXORUBICIN HCL [Suspect]
     Indication: B-CELL LYMPHOMA
     Dates: start: 20060601
  5. PREDNISOLONE [Suspect]
     Indication: B-CELL LYMPHOMA
     Dates: start: 20060601
  6. RITUXIMAB [Suspect]
     Indication: B-CELL LYMPHOMA
  7. ATORVASTATIN [Suspect]
     Indication: HYPERLIPIDAEMIA
  8. COTRIM [Suspect]
     Indication: INFECTION PROPHYLAXIS
  9. REBAMIPIDE [Suspect]
     Indication: INFECTION PROPHYLAXIS
  10. FLUCONAZOLE [Suspect]
     Indication: INFECTION PROPHYLAXIS

REACTIONS (2)
  - HEPATITIS B [None]
  - LIVER INJURY [None]
